FAERS Safety Report 11966298 (Version 2)
Quarter: 2016Q2

REPORT INFORMATION
  Report Type: Spontaneous
  Country: FR (occurrence: FR)
  Receive Date: 20160127
  Receipt Date: 20160414
  Transmission Date: 20160815
  Serious: Yes (Other)
  Sender: FDA-Public Use
  Company Number: FR-VIVUS-2016V1000028

PATIENT
  Age: 71 Year
  Sex: Male
  Weight: 65 kg

DRUGS (1)
  1. SPEDRA [Suspect]
     Active Substance: AVANAFIL
     Indication: ERECTILE DYSFUNCTION
     Route: 048
     Dates: start: 201512, end: 201512

REACTIONS (1)
  - Amaurosis fugax [Recovered/Resolved]

NARRATIVE: CASE EVENT DATE: 20151212
